FAERS Safety Report 11074783 (Version 1)
Quarter: 2015Q2

REPORT INFORMATION
  Report Type: Spontaneous
  Country: GB (occurrence: GB)
  Receive Date: 20150429
  Receipt Date: 20150429
  Transmission Date: 20150821
  Serious: Yes (Other)
  Sender: FDA-Public Use
  Company Number: GB-WATSON-2015-08675

PATIENT
  Age: 24 Year
  Sex: Male

DRUGS (1)
  1. SILDENAFIL ACTAVIS [Suspect]
     Active Substance: SILDENAFIL
     Indication: PRODUCT USED FOR UNKNOWN INDICATION
     Dosage: 50 MG, UNKNOWN
     Route: 048
     Dates: start: 201502

REACTIONS (3)
  - Ear congestion [Recovering/Resolving]
  - Hearing impaired [Unknown]
  - Deafness transitory [Recovering/Resolving]

NARRATIVE: CASE EVENT DATE: 2015
